FAERS Safety Report 6406370-7 (Version None)
Quarter: 2009Q4

REPORT INFORMATION
  Report Type: 
  Country: None (occurrence: None)
  Receive Date: 20091019
  Receipt Date: 20091007
  Transmission Date: 20100525
  Serious: Yes (Other)
  Sender: FDA-Public Use
  Company Number: GB-NOVOPROD-290998

PATIENT
  Sex: Female

DRUGS (3)
  1. MIXTARD HUMAN 70/30 [Suspect]
     Indication: TYPE 2 DIABETES MELLITUS
     Dosage: 36 IU, QD (24+12)
     Route: 058
     Dates: start: 20090801
  2. MIXTARD HUMAN 70/30 [Suspect]
  3. EPILIM [Concomitant]
     Indication: EPILEPSY
     Route: 048

REACTIONS (4)
  - ASTHENIA [None]
  - DYSGEUSIA [None]
  - DYSPNOEA [None]
  - PRODUCT QUALITY ISSUE [None]
